FAERS Safety Report 22057606 (Version 2)
Quarter: 2023Q2

REPORT INFORMATION
  Report Type: Report from Study
  Country: IE (occurrence: IE)
  Receive Date: 20230303
  Receipt Date: 20230403
  Transmission Date: 20230721
  Serious: Yes (Hospitalization, Other)
  Sender: FDA-Public Use
  Company Number: IE-BRISTOL-MYERS SQUIBB COMPANY-2022-141939

PATIENT
  Age: 49 Year
  Sex: Female

DRUGS (7)
  1. NIVOLUMAB [Suspect]
     Active Substance: NIVOLUMAB
     Indication: Malignant melanoma
     Dates: start: 20221025, end: 20221118
  2. NIVOLUMAB [Suspect]
     Active Substance: NIVOLUMAB
     Dosage: 1MG/KG Q3/52
     Route: 042
     Dates: start: 20221102, end: 20230104
  3. NIVOLUMAB [Suspect]
     Active Substance: NIVOLUMAB
     Dosage: Q14/7
     Route: 042
     Dates: start: 20230125
  4. NIVOLUMAB [Suspect]
     Active Substance: NIVOLUMAB
     Dosage: CONTINUES 2 WEEKLY AS PRESCRIBED.
     Dates: end: 20230208
  5. NIVOLUMAB [Suspect]
     Active Substance: NIVOLUMAB
     Dosage: CONTINUES 2 WEEKLY AS PRESCRIBED.
     Dates: end: 20230329
  6. IPILIMUMAB [Suspect]
     Active Substance: IPILIMUMAB
     Indication: Malignant melanoma
     Dates: start: 20221025, end: 20221118
  7. IPILIMUMAB [Suspect]
     Active Substance: IPILIMUMAB
     Route: 042
     Dates: start: 20221102, end: 20230104

REACTIONS (14)
  - Rash maculo-papular [Recovered/Resolved]
  - Infusion related reaction [Unknown]
  - Blood calcium decreased [Unknown]
  - Haemoglobin decreased [Unknown]
  - Gastrooesophageal reflux disease [Unknown]
  - Limb discomfort [Unknown]
  - Pyrexia [Recovered/Resolved]
  - Asthenia [Recovered/Resolved]
  - Dyspnoea [Unknown]
  - Chest pain [Recovered/Resolved]
  - Chest discomfort [Recovered/Resolved]
  - Back pain [Recovered/Resolved]
  - Malignant neoplasm progression [Not Recovered/Not Resolved]
  - Drug ineffective [Unknown]

NARRATIVE: CASE EVENT DATE: 20221123
